FAERS Safety Report 25759218 (Version 1)
Quarter: 2025Q3

REPORT INFORMATION
  Report Type: Spontaneous
  Country: AU (occurrence: AU)
  Receive Date: 20250904
  Receipt Date: 20250904
  Transmission Date: 20251021
  Serious: No
  Sender: ALKEM
  Company Number: AU-ALKEM LABORATORIES LIMITED-AU-ALKEM-2025-04735

PATIENT
  Age: 51 Year
  Sex: Female

DRUGS (2)
  1. MESALAMINE [Suspect]
     Active Substance: MESALAMINE
     Indication: Diarrhoea
     Dosage: 4 GRAM, QD
     Route: 065
  2. MESALAMINE [Suspect]
     Active Substance: MESALAMINE
     Indication: Autoimmune enteropathy
     Dosage: 1 GRAM, BID
     Route: 048

REACTIONS (1)
  - Therapy partial responder [Unknown]
